FAERS Safety Report 12307281 (Version 2)
Quarter: 2016Q2

REPORT INFORMATION
  Report Type: Spontaneous
  Country: HR (occurrence: HR)
  Receive Date: 20160426
  Receipt Date: 20160505
  Transmission Date: 20160815
  Serious: Yes (Death)
  Sender: FDA-Public Use
  Company Number: PHHY2016HR053265

PATIENT
  Age: 79 Year
  Sex: Male
  Weight: 74 kg

DRUGS (3)
  1. XARELTO [Suspect]
     Active Substance: RIVAROXABAN
     Indication: ATRIAL FIBRILLATION
     Dosage: 20 MG, UNK
     Route: 048
     Dates: start: 20160227, end: 20160321
  2. RANITIDINE. [Suspect]
     Active Substance: RANITIDINE
     Indication: PRODUCT USED FOR UNKNOWN INDICATION
     Dosage: 150 MG, UNK
     Route: 048
     Dates: start: 20160227, end: 20160321
  3. PHENOBARBITON PLIVA [Suspect]
     Active Substance: PHENOBARBITAL
     Indication: SUBDURAL HAEMATOMA
     Dosage: 100 MG, UNK
     Route: 048
     Dates: start: 20160226

REACTIONS (12)
  - Mitral valve prolapse [Unknown]
  - Ventricular hypokinesia [Unknown]
  - Muscular weakness [Unknown]
  - Subdural haematoma [Unknown]
  - Septic embolus [Unknown]
  - Cardiac valve vegetation [Unknown]
  - Endocarditis [Unknown]
  - Enterococcal infection [Unknown]
  - Body temperature increased [Unknown]
  - Mitral valve incompetence [Unknown]
  - Death [Fatal]
  - Mitral valve calcification [Unknown]

NARRATIVE: CASE EVENT DATE: 201602
